FAERS Safety Report 24852441 (Version 2)
Quarter: 2025Q3

REPORT INFORMATION
  Report Type: Spontaneous
  Country: US (occurrence: US)
  Receive Date: 20250116
  Receipt Date: 20250909
  Transmission Date: 20251020
  Serious: No
  Sender: INSUD PHARMA
  Company Number: US-INSUD PHARMA-2501US00072

PATIENT

DRUGS (1)
  1. SLYND [Suspect]
     Active Substance: DROSPIRENONE
     Indication: Contraception
     Route: 048
     Dates: end: 202501

REACTIONS (3)
  - Depressed mood [Recovered/Resolved]
  - Mood swings [Recovered/Resolved]
  - Withdrawal syndrome [Recovered/Resolved]
